FAERS Safety Report 5075602-2 (Version None)
Quarter: 2006Q3

REPORT INFORMATION
  Report Type: 
  Country: None (occurrence: None)
  Receive Date: 20060809
  Receipt Date: 20060724
  Transmission Date: 20061208
  Serious: Yes (Life-Threatening)
  Sender: FDA-Public Use
  Company Number: JP-AVENTIS-200612342JP

PATIENT
  Age: 74 Year
  Sex: Female
  Weight: 43 kg

DRUGS (15)
  1. ARAVA [Suspect]
     Indication: RHEUMATOID ARTHRITIS
     Route: 048
     Dates: start: 20030919, end: 20030921
  2. ARAVA [Suspect]
     Route: 048
     Dates: start: 20030922, end: 20050414
  3. ARAVA [Suspect]
     Route: 048
     Dates: start: 20050514, end: 20050902
  4. ARAVA [Suspect]
     Route: 048
     Dates: start: 20050903, end: 20060703
  5. FOSAMAC TABLETS [Suspect]
     Indication: OSTEOPOROSIS
     Route: 048
     Dates: start: 20021108
  6. FERROMIA [Concomitant]
     Indication: IRON DEFICIENCY ANAEMIA
     Route: 048
     Dates: start: 20020425
  7. GEFANIL [Concomitant]
     Indication: PROPHYLAXIS AGAINST GASTROINTESTINAL ULCER
     Route: 048
     Dates: start: 20030919
  8. TAKEPRON [Concomitant]
     Indication: PROPHYLAXIS AGAINST GASTROINTESTINAL ULCER
     Route: 048
     Dates: start: 20030215
  9. PREDNISOLONE [Concomitant]
     Indication: ANTIINFLAMMATORY THERAPY
     Dosage: DOSE: 4MG(AM)/2MG(PM)
     Route: 048
     Dates: start: 20020222
  10. CALCITRIOL [Concomitant]
     Indication: OSTEOPOROSIS
     Route: 048
     Dates: start: 20021108
  11. CALCITRIOL [Concomitant]
     Indication: GASTRIC ULCER SURGERY
     Route: 048
     Dates: start: 20021108
  12. AZULFIDINE [Concomitant]
     Indication: RHEUMATOID ARTHRITIS
     Route: 048
     Dates: end: 20030918
  13. LOXONIN [Concomitant]
     Indication: ANTIINFLAMMATORY THERAPY
     Route: 048
     Dates: start: 20030404
  14. LOXONIN [Concomitant]
     Indication: ANALGESIC EFFECT
     Route: 048
     Dates: start: 20030404
  15. CALCIUM LACTATE [Concomitant]
     Indication: OSTEOPOROSIS
     Route: 048
     Dates: start: 20021108

REACTIONS (8)
  - ABDOMINAL DISTENSION [None]
  - ANOREXIA [None]
  - BLOOD ALKALINE PHOSPHATASE INCREASED [None]
  - BLOOD LACTATE DEHYDROGENASE INCREASED [None]
  - GASTRIC CANCER RECURRENT [None]
  - GASTROENTERITIS [None]
  - RASH [None]
  - SPINAL COMPRESSION FRACTURE [None]
